FAERS Safety Report 5498365-5 (Version None)
Quarter: 2007Q4

REPORT INFORMATION
  Report Type: 
  Country: None (occurrence: None)
  Receive Date: 20071025
  Receipt Date: 20071019
  Transmission Date: 20080405
  Serious: Yes (Death, Life-Threatening, Hospitalization, Other)
  Sender: FDA-Public Use
  Company Number: DE-GENENTECH-244356

PATIENT
  Sex: Female
  Weight: 52 kg

DRUGS (4)
  1. RITUXAN [Suspect]
     Indication: LYMPHOMA
     Dosage: 610 MG, QD
     Route: 042
     Dates: start: 20070320, end: 20070613
  2. CYCLOPHOSPHAMIDE [Suspect]
     Indication: LYMPHOMA
     Dosage: 1220 MG, QD
     Route: 042
     Dates: start: 20070321, end: 20070613
  3. PEGFILGRASTIM [Suspect]
     Indication: LYMPHOMA
     Dosage: 6 MG, QD
     Route: 042
     Dates: start: 20070321, end: 20070613
  4. DOXORUBICIN HCL [Concomitant]
     Indication: LYMPHOMA
     Dosage: 82 MG, QD
     Route: 042
     Dates: start: 20070321, end: 20070613

REACTIONS (1)
  - PULMONARY FIBROSIS [None]
